FAERS Safety Report 4970159-6 (Version None)
Quarter: 2006Q2

REPORT INFORMATION
  Report Type: 
  Country: None (occurrence: None)
  Receive Date: 20060406
  Receipt Date: 20060329
  Transmission Date: 20061013
  Serious: Yes (Disabling)
  Sender: FDA-Public Use
  Company Number: TPA2006A00530

PATIENT
  Age: 52 Year
  Sex: Female
  Weight: 115.6672 kg

DRUGS (3)
  1. ACTOS [Suspect]
     Indication: DIABETES MELLITUS
     Dosage: PER ORAL
     Route: 048
  2. EXENATIDE (ALL OTHER THERAPEUTIC PRODUCTS)(0.25 MILLIGRAM/MILLITERS, I [Suspect]
     Indication: DIABETES MELLITUS NON-INSULIN-DEPENDENT
     Dosage: 5 MCG, 2 IN 1 D SUBCUTANEOUS ; 10 MCG, 2 IN 1 D, SUBCUTANEOUS
     Route: 058
     Dates: start: 20050801, end: 20050901
  3. EXENATIDE (ALL OTHER THERAPEUTIC PRODUCTS)(0.25 MILLIGRAM/MILLITERS, I [Suspect]
     Indication: DIABETES MELLITUS NON-INSULIN-DEPENDENT
     Dosage: 5 MCG, 2 IN 1 D SUBCUTANEOUS ; 10 MCG, 2 IN 1 D, SUBCUTANEOUS
     Route: 058
     Dates: start: 20050901

REACTIONS (2)
  - ABASIA [None]
  - DIABETES MELLITUS [None]
